FAERS Safety Report 16298715 (Version 1)
Quarter: 2019Q2

REPORT INFORMATION
  Report Type: Spontaneous
  Country: KR (occurrence: KR)
  Receive Date: 20190510
  Receipt Date: 20190510
  Transmission Date: 20190711
  Serious: Yes (Hospitalization, Other)
  Sender: FDA-Public Use
  Company Number: KR-009507513-1904KOR001124

PATIENT
  Sex: Male

DRUGS (34)
  1. URANTAC [Concomitant]
     Dosage: QUANTITY 2, DAYS 15
     Dates: start: 20190306, end: 20190321
  2. SANCUSO [Concomitant]
     Active Substance: GRANISETRON
     Dosage: PATCH
     Dates: start: 20190317
  3. RABEONE [Concomitant]
     Route: 048
  4. COMBICIN [Concomitant]
     Dosage: UNK
     Dates: start: 20190316
  5. DUOLAX (BISACODYL (+) DOCUSATE SODIUM) [Concomitant]
     Dosage: QUANTITY 2, DAYS 1
     Dates: start: 20190304
  6. CISPLATIN (+) GEMCITABINE [Concomitant]
     Dosage: UNK
     Dates: start: 20190305
  7. SODIUM CHLORIDE. [Concomitant]
     Active Substance: SODIUM CHLORIDE
     Dosage: QUANTITY 1, DAYS 1
     Dates: start: 20190318
  8. SODIUM CHLORIDE. [Concomitant]
     Active Substance: SODIUM CHLORIDE
     Dosage: 500 MILLILITER, QUANTITY 1, DAYS 34
     Dates: start: 20190227, end: 20190331
  9. ULTRACET [Concomitant]
     Active Substance: ACETAMINOPHEN\TRAMADOL HYDROCHLORIDE
     Dosage: QUANTITY 2, DAYS 16
     Dates: start: 20190306, end: 20190321
  10. DUPHALAC [Concomitant]
     Active Substance: LACTULOSE
     Dosage: QUANTITY 30, DAYS 1
     Dates: start: 20190302
  11. DUPHALAC [Concomitant]
     Active Substance: LACTULOSE
     Dosage: QUANTITY 30, DAYS 1
     Dates: start: 20190304, end: 20190306
  12. IRCODON [Concomitant]
     Active Substance: OXYCODONE HYDROCHLORIDE
     Dosage: QUANTITY 3, DAYS 25
     Dates: start: 20190321, end: 20190325
  13. KEYTRUDA [Suspect]
     Active Substance: PEMBROLIZUMAB
     Indication: GALLBLADDER CANCER
     Dosage: QUANTITY 1, DAYS 1
     Dates: start: 20190318
  14. SODIUM CHLORIDE. [Concomitant]
     Active Substance: SODIUM CHLORIDE
     Dosage: QUANTITY 1, DAYS 24
     Dates: start: 20190227, end: 20190321
  15. URSA TABLETS [Concomitant]
     Dosage: QUANTITY 3, DAYS 22
     Dates: start: 20190321, end: 20190328
  16. HELPOVIN [Concomitant]
     Dosage: UQUANTITY 3, DAYS 22
     Dates: start: 20190228, end: 20190321
  17. MECPERAN [Concomitant]
     Dosage: QUANTITY 1, DAYS 5
     Dates: start: 20190308, end: 20190321
  18. ADALAT [Concomitant]
     Active Substance: NIFEDIPINE
     Dosage: UNK
     Route: 048
     Dates: start: 20190304
  19. ABSTRAL [Concomitant]
     Active Substance: FENTANYL CITRATE
     Dosage: QUANTITY 3
     Route: 060
     Dates: start: 20190314
  20. EPOCELIN [Concomitant]
     Active Substance: CEFTIZOXIME SODIUM
     Dosage: UNK
     Dates: start: 20190315, end: 20190317
  21. HEPARIN [Concomitant]
     Active Substance: HEPARIN SODIUM
     Dosage: 5 MILLIGRAM
     Dates: start: 20190306, end: 20190318
  22. KEYTRUDA [Suspect]
     Active Substance: PEMBROLIZUMAB
     Dosage: QUANTITY 1, DAYS 2
     Dates: start: 201903
  23. KEYTRUDA [Suspect]
     Active Substance: PEMBROLIZUMAB
     Dosage: QUANTITY 1, DAYS 1
     Dates: start: 20190410
  24. SODIUM CHLORIDE. [Concomitant]
     Active Substance: SODIUM CHLORIDE
     Dosage: QUANTITY 2, DAYS 1
     Dates: start: 20190318
  25. LASIX [Concomitant]
     Active Substance: FUROSEMIDE
     Dosage: QUANTITY 1,
     Dates: start: 20190305, end: 20190312
  26. COMBICIN [Concomitant]
     Dosage: UNK
     Dates: start: 20190316
  27. URSA TABLETS [Concomitant]
     Dosage: QUANTITY 1, DAYS 1
     Dates: start: 20190312
  28. SODIUM CHLORIDE. [Concomitant]
     Active Substance: SODIUM CHLORIDE
     Dosage: 0.45%, 500 MILLILITER, QUANTITY 1, DAYS 4
     Dates: start: 20190305, end: 20190318
  29. COZAAR [Concomitant]
     Active Substance: LOSARTAN POTASSIUM
     Dosage: QUANTITY 1, DAYS 2
     Dates: start: 20190304, end: 20190304
  30. PENIRAMIN [Concomitant]
     Dosage: QUANTITY 1, DAYS 4
     Dates: start: 20190305, end: 20190318
  31. DUROGESIC [Concomitant]
     Active Substance: FENTANYL
     Dosage: STRENGTH: 12 MCG/H 5.25 CM2;  QUANTITY: 1, DAYS 8
     Dates: start: 20190303, end: 20190321
  32. GODEX (ADENINE HYDROCHLORIDE (+) BIFENDATE (+) CARNITINE OROTATE (+) C [Concomitant]
     Dosage: QUANTITY 2
     Dates: start: 20190312
  33. AMODIPIN [Concomitant]
     Dosage: QUANTITY 1, DAYS 2
     Dates: start: 20190304, end: 20190305
  34. MVH INJECTION [Concomitant]
     Dosage: QUANTITY 1, DAYS 15.
     Dates: start: 20190227, end: 20190320

REACTIONS (3)
  - Transfusion [Unknown]
  - Product use in unapproved indication [Unknown]
  - Adverse event [Unknown]

NARRATIVE: CASE EVENT DATE: 2019
